FAERS Safety Report 4549839-2 (Version None)
Quarter: 2004Q4

REPORT INFORMATION
  Report Type: 
  Country: None (occurrence: None)
  Receive Date: 20041227
  Receipt Date: 20041101
  Transmission Date: 20050328
  Serious: No
  Sender: FDA-Public Use
  Company Number: 04P-163-0279523-00

PATIENT
  Age: 60 Year
  Sex: Female
  Weight: 106.5953 kg

DRUGS (5)
  1. HUMIRA [Suspect]
     Indication: RHEUMATOID ARTHRITIS
     Dosage: 40 MG, 1 IN 1 WK, SUBCUTANEOUS
     Route: 058
     Dates: start: 20040101
  2. ^ANTI-TUBERCULOSIS^ [Concomitant]
  3. METHOTREXATE [Concomitant]
  4. AZATHIOPRINE [Concomitant]
  5. FOLIC ACID [Concomitant]

REACTIONS (1)
  - INJECTION SITE STINGING [None]
